FAERS Safety Report 11722431 (Version 19)
Quarter: 2019Q1

REPORT INFORMATION
  Report Type: Spontaneous
  Country: US (occurrence: US)
  Receive Date: 20151111
  Receipt Date: 20190326
  Transmission Date: 20190417
  Serious: Yes (Congenital Anomaly, Other)
  Sender: FDA-Public Use
  Company Number: PHEH2015US022861

PATIENT
  Sex: Male

DRUGS (7)
  1. ZOFRAN [Suspect]
     Active Substance: ONDANSETRON HYDROCHLORIDE
     Indication: FOETAL EXPOSURE DURING PREGNANCY
     Dosage: MOTHER^S DOSE: 04 MG
     Route: 064
  2. ZOFRAN [Suspect]
     Active Substance: ONDANSETRON HYDROCHLORIDE
     Indication: FOETAL EXPOSURE DURING PREGNANCY
     Dosage: MOTHER^S DOSE: 04 MG, Q4H
     Route: 064
  3. ONDANSETRON. [Suspect]
     Active Substance: ONDANSETRON
     Indication: FOETAL EXPOSURE DURING PREGNANCY
     Dosage: MOTHER DOSE: 04 MG
     Route: 064
  4. ONDANSETRON DR REDDY [Suspect]
     Active Substance: ONDANSETRON
     Indication: FOETAL EXPOSURE DURING PREGNANCY
     Dosage: MOTHER DOSE: 04 MG, 03 TO 04 TIMES DAILY
     Route: 064
  5. ONDANSETRON [Suspect]
     Active Substance: ONDANSETRON
     Indication: FOETAL EXPOSURE DURING PREGNANCY
     Route: 064
  6. ONDANSETRON [Suspect]
     Active Substance: ONDANSETRON
     Indication: FOETAL EXPOSURE DURING PREGNANCY
     Route: 064
  7. ONDANSETRON. [Suspect]
     Active Substance: ONDANSETRON
     Indication: FOETAL EXPOSURE DURING PREGNANCY
     Dosage: MOTHER DOSE: 08 MG, QID
     Route: 064

REACTIONS (30)
  - Multiple congenital abnormalities [Unknown]
  - Transposition of the great vessels [Unknown]
  - Bradycardia neonatal [Unknown]
  - Anaemia neonatal [Unknown]
  - Asthma [Unknown]
  - Congenital anomaly [Unknown]
  - Hypoplastic left heart syndrome [Unknown]
  - Umbilical hernia [Unknown]
  - Abdominal hernia [Unknown]
  - Intraventricular haemorrhage [Unknown]
  - Anxiety [Unknown]
  - Cardiac murmur [Unknown]
  - Neonatal respiratory distress syndrome [Not Recovered/Not Resolved]
  - Gastrooesophageal reflux disease [Unknown]
  - Premature baby [Unknown]
  - Peripheral artery stenosis [Unknown]
  - Sepsis neonatal [Unknown]
  - Injury [Unknown]
  - Anhedonia [Unknown]
  - Jaundice neonatal [Recovered/Resolved]
  - Heart disease congenital [Unknown]
  - Hyperbilirubinaemia [Unknown]
  - Neutropenia neonatal [Unknown]
  - Foetal exposure during pregnancy [Unknown]
  - Scar [Unknown]
  - Selective eating disorder [Unknown]
  - Hypoplastic right heart syndrome [Unknown]
  - Emotional distress [Unknown]
  - Pain [Unknown]
  - Constipation [Unknown]

NARRATIVE: CASE EVENT DATE: 20120430
